FAERS Safety Report 24958392 (Version 1)
Quarter: 2025Q1

REPORT INFORMATION
  Report Type: Spontaneous
  Country: JP (occurrence: JP)
  Receive Date: 20250212
  Receipt Date: 20250212
  Transmission Date: 20250408
  Serious: Yes (Death, Other)
  Sender: RANBAXY
  Company Number: JP-SUNPHARMA-2025R1-492056AA

PATIENT
  Age: 74 Year
  Sex: Female

DRUGS (1)
  1. GEMCITABINE HYDROCHLORIDE [Suspect]
     Active Substance: GEMCITABINE HYDROCHLORIDE
     Indication: Adenosquamous cell carcinoma
     Route: 065

REACTIONS (3)
  - Abdominal abscess [Fatal]
  - Blood loss anaemia [Unknown]
  - Peritonitis [Unknown]
